FAERS Safety Report 19502402 (Version 1)
Quarter: 2021Q3

REPORT INFORMATION
  Report Type: Report from Study
  Country: US (occurrence: US)
  Receive Date: 20210707
  Receipt Date: 20210707
  Transmission Date: 20211014
  Serious: Yes (Death, Hospitalization)
  Sender: FDA-Public Use
  Company Number: US-B.I. PHARMACEUTICALS,INC./RIDGEFIELD-2021-BI-102545

PATIENT
  Age: 63 Year
  Sex: Female

DRUGS (1)
  1. OFEV [Suspect]
     Active Substance: NINTEDANIB
     Indication: IDIOPATHIC PULMONARY FIBROSIS
     Dosage: 150MG CAPSULE BID PO
     Route: 048
     Dates: start: 20210410, end: 20210627

REACTIONS (8)
  - Headache [Not Recovered/Not Resolved]
  - Diarrhoea [Fatal]
  - Fall [Unknown]
  - Asthenia [Unknown]
  - Oxygen saturation decreased [Fatal]
  - Illness [Unknown]
  - Weight decreased [Fatal]
  - Diarrhoea [Unknown]

NARRATIVE: CASE EVENT DATE: 2021
